FAERS Safety Report 10922009 (Version 1)
Quarter: 2015Q1

REPORT INFORMATION
  Report Type: Spontaneous
  Country: MX (occurrence: MX)
  Receive Date: 20150317
  Receipt Date: 20150317
  Transmission Date: 20150721
  Serious: Yes (Other)
  Sender: FDA-Public Use
  Company Number: MX-NAPPMUNDI-GBR-2015-0025996

PATIENT
  Age: 39 Year
  Sex: Female

DRUGS (5)
  1. GABAPENTIN. [Concomitant]
     Active Substance: GABAPENTIN
     Indication: FIBROMYALGIA
     Dosage: 300 MG, DAILY
  2. TRAMADOL [Concomitant]
     Active Substance: TRAMADOL
     Indication: FIBROMYALGIA
     Dosage: UNK
  3. CITALOPRAM [Concomitant]
     Active Substance: CITALOPRAM HYDROBROMIDE
     Indication: FIBROMYALGIA
     Dosage: 10 MG, UNK
  4. SOLORO7 [Suspect]
     Active Substance: BUPRENORPHINE
     Indication: PAIN
     Dosage: 1.25 MG, UNK
     Route: 062
     Dates: start: 20141125, end: 20141125
  5. SOLORO7 [Suspect]
     Active Substance: BUPRENORPHINE
     Dosage: 10 MG, UNK
     Route: 062
     Dates: start: 20141121, end: 20141121

REACTIONS (10)
  - Respiratory failure [Recovered/Resolved]
  - Drug intolerance [Recovered/Resolved]
  - Anxiety [Recovered/Resolved]
  - Palpitations [Recovered/Resolved]
  - Feeling hot [Recovered/Resolved]
  - Wrong technique in drug usage process [Recovered/Resolved]
  - Throat tightness [Recovered/Resolved]
  - Chest pain [Recovered/Resolved]
  - Headache [Recovered/Resolved]
  - Headache [Recovered/Resolved]

NARRATIVE: CASE EVENT DATE: 20141121
